FAERS Safety Report 22335803 (Version 1)
Quarter: 2023Q2

REPORT INFORMATION
  Report Type: Report from Study
  Country: DK (occurrence: DK)
  Receive Date: 20230518
  Receipt Date: 20230518
  Transmission Date: 20230721
  Serious: Yes (Other)
  Sender: FDA-Public Use
  Company Number: DK-JNJFOC-20230520903

PATIENT
  Sex: Female

DRUGS (1)
  1. RISPERDAL [Suspect]
     Active Substance: RISPERIDONE
     Indication: Product used for unknown indication
     Route: 065

REACTIONS (2)
  - Abortion spontaneous [Unknown]
  - Exposure during pregnancy [Unknown]
